FAERS Safety Report 15526005 (Version 1)
Quarter: 2018Q4

REPORT INFORMATION
  Report Type: Report from Study
  Country: US (occurrence: US)
  Receive Date: 20181018
  Receipt Date: 20181018
  Transmission Date: 20190205
  Serious: No
  Sender: FDA-Public Use
  Company Number: US-IPSEN BIOPHARMACEUTICALS, INC.-2018-12825

PATIENT
  Age: 6 Year
  Sex: Male
  Weight: 15.7 kg

DRUGS (6)
  1. CLONIDINE HCL [Concomitant]
     Active Substance: CLONIDINE HYDROCHLORIDE
     Route: 048
     Dates: start: 20180316, end: 20180719
  2. LIDOCAINE. [Concomitant]
     Active Substance: LIDOCAINE
     Indication: PROPHYLAXIS
     Dosage: DOSE: 15 (UNITS NOT SPECIFIED) AND 5 (UNITS NOT SPECIFIED, ROUTE: TOPICAL).
     Route: 048
     Dates: start: 20180508, end: 20180508
  3. IBUPROFEN 100MG/5ML [Concomitant]
     Active Substance: IBUPROFEN
     Indication: PAIN
     Route: 048
     Dates: start: 20180507
  4. DIVALPROEX [Concomitant]
     Active Substance: DIVALPROEX SODIUM
     Indication: SEIZURE
     Route: 048
     Dates: start: 20180418
  5. DEXMEDETOMIDINE HCL [Concomitant]
     Indication: SEDATION
     Dosage: DOSE: 50 (UNITS NOT SPECIFIED)
     Route: 045
     Dates: start: 20180508, end: 20180508
  6. DYSPORT [Suspect]
     Active Substance: ABOBOTULINUMTOXINA
     Indication: MUSCLE SPASTICITY
     Dosage: 490 UNITS
     Route: 030
     Dates: start: 20180508, end: 20180508

REACTIONS (2)
  - Upper respiratory tract infection [Recovered/Resolved]
  - Vomiting [Recovered/Resolved]

NARRATIVE: CASE EVENT DATE: 20180508
